FAERS Safety Report 24410273 (Version 2)
Quarter: 2024Q4

REPORT INFORMATION
  Report Type: Report from Study
  Country: US (occurrence: US)
  Receive Date: 20241008
  Receipt Date: 20241017
  Transmission Date: 20250115
  Serious: Yes (Hospitalization, Other)
  Sender: ABBVIE
  Company Number: US-ABBVIE-5952511

PATIENT
  Sex: Male
  Weight: 62 kg

DRUGS (4)
  1. CREON [Suspect]
     Active Substance: PANCRELIPASE AMYLASE\PANCRELIPASE LIPASE\PANCRELIPASE PROTEASE
     Indication: Pancreatic carcinoma
     Dosage: LAST ADMIN DATE: 08/2024?2 CAPS EACH MEAL AND 1 CAP EACH SNACK?FORM STRENGTH: 36000 MG
     Route: 048
     Dates: start: 20240801
  2. CREON [Suspect]
     Active Substance: PANCRELIPASE AMYLASE\PANCRELIPASE LIPASE\PANCRELIPASE PROTEASE
     Indication: Pancreatic carcinoma
     Dosage: 3CAPS EACH MEAL AND 2 CAPS EACH SNACK?FORM STRENGTH: 36000 MG
     Route: 048
     Dates: start: 202408, end: 20240917
  3. CREON [Suspect]
     Active Substance: PANCRELIPASE AMYLASE\PANCRELIPASE LIPASE\PANCRELIPASE PROTEASE
     Indication: Pancreatic carcinoma
     Dosage: 2 CAPS EACH MEAL AND 1 CAP EACH SNACK?FORM STRENGTH: 36000 MG
     Route: 048
     Dates: start: 20240928
  4. DEXAMETHASONE [Concomitant]
     Active Substance: DEXAMETHASONE
     Indication: Chemotherapy side effect prophylaxis

REACTIONS (3)
  - Hernia [Recovering/Resolving]
  - Diarrhoea [Recovering/Resolving]
  - Flatulence [Unknown]

NARRATIVE: CASE EVENT DATE: 20240101
